FAERS Safety Report 10098012 (Version 1)
Quarter: 2014Q2

REPORT INFORMATION
  Report Type: Spontaneous
  Country: US (occurrence: None)
  Receive Date: 20140421
  Receipt Date: 20140421
  Transmission Date: 20141212
  Serious: Yes (Life-Threatening)
  Sender: FDA-Public Use
  Company Number: 2291011

PATIENT
  Age: 27 Year
  Sex: Female

DRUGS (2)
  1. MAGNESIUM SULFATE [Suspect]
     Indication: PREMATURE LABOUR
     Dosage: 12 G GRAM(S), 1 HOUR, INTRAVENOUT (NOT OTHERWISE SPECIFIED)
     Route: 042
  2. CALCIUM [Suspect]
     Indication: HYPOTENSION
     Dosage: INTRAVENOUS (NOT OTHERWISE SPECIFIED)
     Route: 042

REACTIONS (11)
  - Dizziness [None]
  - Toxicity to various agents [None]
  - Blood magnesium increased [None]
  - Maternal exposure during pregnancy [None]
  - Flushing [None]
  - Dyspnoea [None]
  - Hypotension [None]
  - Unresponsive to stimuli [None]
  - Caesarean section [None]
  - Incorrect dose administered [None]
  - Device computer issue [None]
